FAERS Safety Report 23690336 (Version 3)
Quarter: 2024Q3

REPORT INFORMATION
  Report Type: Report from Study
  Country: US (occurrence: US)
  Receive Date: 20240401
  Receipt Date: 20240911
  Transmission Date: 20241016
  Serious: Yes (Hospitalization, Other)
  Sender: JAZZ
  Company Number: US-JAZZ PHARMACEUTICALS-2023-US-020509

PATIENT
  Age: 13 Year
  Sex: Male
  Weight: 97 kg

DRUGS (3)
  1. EPIDIOLEX [Suspect]
     Active Substance: CANNABIDIOL
     Indication: Epilepsy
     Dosage: 2ML IN AM AND 4ML IN EVENING
     Route: 048
  2. EPIDIOLEX [Suspect]
     Active Substance: CANNABIDIOL
     Indication: Tuberous sclerosis complex
     Dosage: 5.5 MILLILITER, BID
     Route: 048
     Dates: start: 20230603
  3. EPIDIOLEX [Suspect]
     Active Substance: CANNABIDIOL
     Dosage: 7.8ML AND 9.7ML
     Route: 048

REACTIONS (5)
  - Hospitalisation [Recovering/Resolving]
  - Seizure [Unknown]
  - Brain neoplasm [Unknown]
  - Seizure [Unknown]
  - Weight decreased [Unknown]

NARRATIVE: CASE EVENT DATE: 20231001
